FAERS Safety Report 9483928 (Version 1)
Quarter: 2013Q3

REPORT INFORMATION
  Report Type: Spontaneous
  Country: US (occurrence: US)
  Receive Date: 20130828
  Receipt Date: 20130828
  Transmission Date: 20140515
  Serious: Yes (Hospitalization)
  Sender: FDA-Public Use
  Company Number: PHEH2013US018150

PATIENT
  Sex: Female

DRUGS (3)
  1. DIOVAN HCT [Suspect]
     Dosage: 1 DF (VALS 160 MG, HCTZ 25 MG)
  2. DIOVAN HCT [Suspect]
     Dosage: 1 DF (VALS 160 MG, HCTZ 25 MG)
  3. METOPROLOL [Concomitant]
     Dosage: UNK UKN, UNK

REACTIONS (4)
  - Myocardial infarction [Unknown]
  - Loss of consciousness [Unknown]
  - Blood pressure inadequately controlled [Recovering/Resolving]
  - Dizziness [Unknown]
